FAERS Safety Report 16418347 (Version 5)
Quarter: 2020Q1

REPORT INFORMATION
  Report Type: Report from Study
  Country: CA (occurrence: CA)
  Receive Date: 20190612
  Receipt Date: 20200121
  Transmission Date: 20200409
  Serious: Yes (Disabling, Other)
  Sender: FDA-Public Use
  Company Number: CA-BRISTOL-MYERS SQUIBB COMPANY-BMS-2017-046225

PATIENT
  Age: 66 Year
  Sex: Female
  Weight: 91 kg

DRUGS (6)
  1. TYLENOL [Concomitant]
     Active Substance: ACETAMINOPHEN
     Indication: PRODUCT USED FOR UNKNOWN INDICATION
     Route: 065
  2. PREDNISONE. [Concomitant]
     Active Substance: PREDNISONE
     Indication: PRODUCT USED FOR UNKNOWN INDICATION
     Route: 065
  3. ABATACEPT [Suspect]
     Active Substance: ABATACEPT
     Indication: RHEUMATOID ARTHRITIS
     Dosage: 750 MILLIGRAM, Q4WK
     Route: 042
     Dates: start: 20111201, end: 20170310
  4. CORTISONE [Concomitant]
     Active Substance: CORTISONE
     Indication: PRODUCT USED FOR UNKNOWN INDICATION
     Route: 065
  5. CLARITHROMYCIN. [Concomitant]
     Active Substance: CLARITHROMYCIN
     Indication: PRODUCT USED FOR UNKNOWN INDICATION
     Dosage: 500 MILLIGRAM, BID
     Route: 048
  6. METRONIDAZOLE. [Concomitant]
     Active Substance: METRONIDAZOLE
     Indication: PRODUCT USED FOR UNKNOWN INDICATION
     Dosage: 500 MILLIGRAM, TID
     Route: 048

REACTIONS (24)
  - Gastric disorder [Unknown]
  - Pyrexia [Unknown]
  - Musculoskeletal pain [Unknown]
  - Influenza [Unknown]
  - Gastric infection [Unknown]
  - Administration site swelling [Unknown]
  - Dental care [Unknown]
  - Nasopharyngitis [Unknown]
  - Cough [Unknown]
  - Weight decreased [Unknown]
  - Bursitis [Unknown]
  - Polyp [Unknown]
  - Aphonia [Unknown]
  - Tooth infection [Recovering/Resolving]
  - Bronchitis [Recovered/Resolved]
  - Fatigue [Unknown]
  - Infusion site extravasation [Unknown]
  - Weight fluctuation [Recovered/Resolved]
  - Arthralgia [Unknown]
  - Respiratory tract congestion [Unknown]
  - Weight increased [Unknown]
  - Mobility decreased [Unknown]
  - Haematochezia [Unknown]
  - Oedema [Unknown]

NARRATIVE: CASE EVENT DATE: 20170520
